FAERS Safety Report 8152366-7 (Version None)
Quarter: 2012Q1

REPORT INFORMATION
  Report Type: 
  Country: None (occurrence: None)
  Receive Date: 20120221
  Receipt Date: 20120208
  Transmission Date: 20120608
  Serious: Yes (Hospitalization, Other)
  Sender: FDA-Public Use
  Company Number: MA-JNJFOC-20111204897

PATIENT
  Sex: Female
  Weight: 45 kg

DRUGS (5)
  1. REMICADE [Suspect]
     Indication: CROHN'S DISEASE
     Dosage: TOTAL : 1 INJECTION
     Route: 042
     Dates: start: 20100101, end: 20100101
  2. ACETAMINOPHEN [Concomitant]
     Indication: PRODUCT USED FOR UNKNOWN INDICATION
     Route: 042
     Dates: start: 20110121, end: 20110131
  3. FLAGYL [Concomitant]
     Indication: PRODUCT USED FOR UNKNOWN INDICATION
     Route: 042
     Dates: start: 20110121, end: 20110131
  4. OMEPRAZOLE [Concomitant]
     Indication: PRODUCT USED FOR UNKNOWN INDICATION
     Route: 042
     Dates: start: 20110121, end: 20110131
  5. TRIAXONE [Concomitant]
     Indication: PRODUCT USED FOR UNKNOWN INDICATION
     Route: 042
     Dates: start: 20110121, end: 20110131

REACTIONS (8)
  - NEUTROPENIA [None]
  - LOSS OF CONSCIOUSNESS [None]
  - THROMBOCYTOPENIA [None]
  - CYTOLYTIC HEPATITIS [None]
  - INFECTION [None]
  - APLASIA [None]
  - HAEMOLYTIC ANAEMIA [None]
  - EPILEPSY [None]
